FAERS Safety Report 6532731-1 (Version None)
Quarter: 2010Q1

REPORT INFORMATION
  Report Type: 
  Country: None (occurrence: None)
  Receive Date: 20100111
  Receipt Date: 20100104
  Transmission Date: 20100710
  Serious: Yes (Other)
  Sender: FDA-Public Use
  Company Number: US-SANOFI-AVENTIS-A03200903352

PATIENT
  Age: 59 Year
  Sex: Female
  Weight: 71.67 kg

DRUGS (6)
  1. AMBIEN CR [Suspect]
     Indication: SLEEP DISORDER
     Route: 048
     Dates: start: 20080301, end: 20090202
  2. ATENOLOL/CHLORTALIDONE [Concomitant]
     Indication: HYPERTENSION
     Route: 065
  3. PLAVIX [Concomitant]
     Route: 065
  4. LIPITOR [Concomitant]
     Route: 065
  5. ASPIRIN [Concomitant]
     Route: 065
  6. FEMARA [Concomitant]
     Indication: BREAST CANCER
     Route: 065

REACTIONS (4)
  - AMNESIA [None]
  - IMPAIRED DRIVING ABILITY [None]
  - SLEEP TALKING [None]
  - SOMNAMBULISM [None]
